FAERS Safety Report 17018525 (Version 3)
Quarter: 2020Q3

REPORT INFORMATION
  Report Type: Spontaneous
  Country: TH (occurrence: TH)
  Receive Date: 20191111
  Receipt Date: 20200801
  Transmission Date: 20201102
  Serious: Yes (Other)
  Sender: FDA-Public Use
  Company Number: PHHY2018TH022824

PATIENT
  Age: 45 Year
  Sex: Female

DRUGS (22)
  1. ENTRESTO [Suspect]
     Active Substance: SACUBITRIL\VALSARTAN
     Indication: CARDIAC FAILURE
     Dosage: 100 MG, BID (1X2, AFTER MEAL IN THE MORNING AND EVENING)
     Route: 048
  2. HYLES [Concomitant]
     Indication: HYPERTENSION
     Dosage: 25 MG, QD (1X1 AFTER MEAL IN THE MORNING)
     Route: 048
  3. LASIX [Concomitant]
     Active Substance: FUROSEMIDE
     Indication: POLYURIA
     Dosage: 40 MG, QD (HALF TABLET DAILY AFTER MEAL IN THE MORNING)
     Route: 048
  4. CONCOR [Concomitant]
     Active Substance: BISOPROLOL FUMARATE
     Indication: HYPERTENSION
     Dosage: 1 DF, QD (1X1, AFTER MEAL IN THE MORNING)
     Route: 048
  5. DIGOXIN. [Concomitant]
     Active Substance: DIGOXIN
     Indication: CARDIAC FAILURE
     Dosage: 0.25 MG
     Route: 065
  6. ENTRESTO [Suspect]
     Active Substance: SACUBITRIL\VALSARTAN
     Dosage: 200 MG, BID (HALF TABLET TWICE A DAY AFTER MEAL IN THE MORNING AND EVENING)
     Route: 048
  7. ALDACTONE [Concomitant]
     Active Substance: SPIRONOLACTONE
     Indication: POLYURIA
     Dosage: 1 DF, QD (AFTER MEAL IN THE MORNING)
     Route: 065
  8. BISOPROL [Concomitant]
     Active Substance: BISOPROLOL FUMARATE
     Indication: CARDIAC FAILURE
     Dosage: 2.5 MG
     Route: 065
  9. EZETIMIBE SANDOZ [Suspect]
     Active Substance: EZETIMIBE
     Indication: HYPERLIPIDAEMIA
     Dosage: 10 MG, QD (HALF?TAB DAILY AFTER MEAL IN THE MORNING)
     Route: 048
  10. ASCOT [Concomitant]
     Indication: ANTICOAGULANT THERAPY
     Dosage: 81 MG, QD (1X1, AFTER MEAL IN THE MORNING)
     Route: 048
  11. LASIX [Concomitant]
     Active Substance: FUROSEMIDE
     Dosage: 40 MG, QOD (HALF TABLET EVERY OTHER DAY)
     Route: 048
     Dates: start: 20190408
  12. MATENOL [Concomitant]
     Indication: PRODUCT USED FOR UNKNOWN INDICATION
     Dosage: 35 MG, BID (1X2 AFTER MEAL IN THE MORNING AND EVENING)
     Route: 048
  13. ENTRESTO [Suspect]
     Active Substance: SACUBITRIL\VALSARTAN
     Dosage: 200 MG, BID (1X2 AFTER MEAL IN THE MORNING AND EVENING)
     Route: 048
     Dates: start: 20190408
  14. HYLES [Concomitant]
     Indication: POLYURIA
  15. SACUBITRIL VALSARTAN SODIUM HYDRATE [Concomitant]
     Active Substance: SACUBITRIL\VALSARTAN
     Indication: PRODUCT USED FOR UNKNOWN INDICATION
     Dosage: 100 MG
     Route: 065
  16. SPIRONOLACTONE. [Concomitant]
     Active Substance: SPIRONOLACTONE
     Indication: CARDIAC FAILURE
     Dosage: 25 MG
     Route: 065
  17. ROSUVASTATIN SANDOZ 20MG [Suspect]
     Active Substance: ROSUVASTATIN
     Indication: HYPERLIPIDAEMIA
     Dosage: 1 DF, QD (1X1 AFTER MEAL IN THE EVENING)
     Route: 048
  18. FLEMEX [Concomitant]
     Indication: COUGH
     Dosage: 1 DF, TID (AFTER MEAL IN THE MORNING, NOON, EVENING)
     Route: 065
  19. ENTRESTO [Suspect]
     Active Substance: SACUBITRIL\VALSARTAN
     Dosage: 200 MG, BID (AFTER MEAL IN THE MORNING AND EVENING)
     Route: 048
  20. FLUARIX TETRA [Concomitant]
     Active Substance: INFLUENZA VIRUS VACCINE
     Indication: PRODUCT USED FOR UNKNOWN INDICATION
     Dosage: 0.5 ML
     Route: 030
  21. LANOXIN [Concomitant]
     Active Substance: DIGOXIN
     Indication: PRODUCT USED FOR UNKNOWN INDICATION
     Dosage: 0.25 MG, QD (1/2X1, HALF TAB DAILY AFTER MEAL IN THE MORNING)
     Route: 048
  22. LASIX [Concomitant]
     Active Substance: FUROSEMIDE
     Indication: CARDIAC FAILURE ACUTE
     Dosage: 40 MG, Q6H (HALF TABLET)
     Route: 048

REACTIONS (5)
  - Wrong technique in product usage process [Unknown]
  - Congestive cardiomyopathy [Unknown]
  - Blood pressure diastolic decreased [Recovered/Resolved]
  - Oedema [Unknown]
  - Hypotension [Unknown]

NARRATIVE: CASE EVENT DATE: 20190304
